FAERS Safety Report 6639300-3 (Version None)
Quarter: 2010Q1

REPORT INFORMATION
  Report Type: 
  Country: None (occurrence: None)
  Receive Date: 20100315
  Receipt Date: 20100302
  Transmission Date: 20100710
  Serious: Yes (Hospitalization)
  Sender: FDA-Public Use
  Company Number: 2010NI0063

PATIENT
  Age: 69 Year
  Sex: Female

DRUGS (10)
  1. NITROGLYCERIN [Suspect]
     Indication: CHEST PAIN
     Dosage: 3 DOSES, NARATE OF 10 UG/MIIN
  2. NITROGLYCERIN [Suspect]
     Indication: CHEST PAIN
  3. ASPIRIN [Concomitant]
  4. OMEPRAZOLE [Concomitant]
  5. METOPROLOL [Concomitant]
  6. SIMVASTATIN [Concomitant]
  7. INHALED BUDESONIDE [Concomitant]
  8. BANDRONATE SODIUM [Concomitant]
  9. CALCIUM CARBONATE [Concomitant]
  10. LACTASE [Concomitant]

REACTIONS (7)
  - ANAPHYLACTIC REACTION [None]
  - ANGIOEDEMA [None]
  - DYSPHONIA [None]
  - FALSE POSITIVE LABORATORY RESULT [None]
  - PALLOR [None]
  - SKIN TEST POSITIVE [None]
  - URTICARIA [None]
